FAERS Safety Report 8091057-8 (Version None)
Quarter: 2012Q1

REPORT INFORMATION
  Report Type: 
  Country: None (occurrence: None)
  Receive Date: 20120131
  Receipt Date: 20120123
  Transmission Date: 20120608
  Serious: Yes (Other)
  Sender: FDA-Public Use
  Company Number: US-SHIRE-ALL1-2012-00407

PATIENT
  Sex: Male

DRUGS (2)
  1. ADDERALL XR 10 [Suspect]
     Indication: PRODUCT USED FOR UNKNOWN INDICATION
     Dosage: 60 MG, UNKNOWN (30 MG CAPSULES; 2 CAPSULES EVERY DAY)
     Route: 048
     Dates: start: 20110701, end: 20120101
  2. ADDERALL XR 10 [Suspect]
     Dosage: 30 MG, 1X/DAY:QD
     Route: 048
     Dates: start: 20120101

REACTIONS (4)
  - CONDITION AGGRAVATED [None]
  - OVERDOSE [None]
  - PHYSICAL ASSAULT [None]
  - AGGRESSION [None]
